FAERS Safety Report 11336594 (Version 2)
Quarter: 2015Q3

REPORT INFORMATION
  Report Type: Report from Study
  Country: JP (occurrence: JP)
  Receive Date: 20150804
  Receipt Date: 20150826
  Transmission Date: 20151125
  Serious: Yes (Hospitalization)
  Sender: FDA-Public Use
  Company Number: JP-PFIZER INC-2015256801

PATIENT
  Age: 56 Year
  Sex: Male
  Weight: 67.2 kg

DRUGS (5)
  1. AZULFIDINE [Concomitant]
     Active Substance: SULFASALAZINE
     Dosage: 4 TABS, UNK
     Dates: end: 20140827
  2. METHOTREXATE [Concomitant]
     Active Substance: METHOTREXATE
     Dosage: 10 MG, WEEKLY
     Dates: end: 20140827
  3. FOLIAMIN [Concomitant]
     Active Substance: FOLIC ACID
     Dosage: 1 TAB, UNK
     Route: 048
  4. CEREDIST [Concomitant]
     Active Substance: TALTIRELIN
     Dosage: 5 MG, UNK
     Route: 048
  5. XELJANZ [Suspect]
     Active Substance: TOFACITINIB CITRATE
     Indication: RHEUMATOID ARTHRITIS
     Dosage: 5 MG, 1X/DAY
     Route: 048
     Dates: start: 20140724, end: 20140820

REACTIONS (2)
  - Hypernatraemia [Recovering/Resolving]
  - Duodenal ulcer [Not Recovered/Not Resolved]

NARRATIVE: CASE EVENT DATE: 20140804
